FAERS Safety Report 26121470 (Version 1)
Quarter: 2025Q4

REPORT INFORMATION
  Report Type: Spontaneous
  Country: CN (occurrence: CN)
  Receive Date: 20251204
  Receipt Date: 20251204
  Transmission Date: 20260118
  Serious: Yes (Other)
  Sender: BLUEPRINT MEDICINES
  Company Number: CN-CSTONE PHARMACEUTICALS (SUZHOU) CO., LTD.-2025CN00916

PATIENT
  Age: 14 Year
  Sex: Male
  Weight: 55 kg

DRUGS (3)
  1. AYVAKIT [Suspect]
     Active Substance: AVAPRITINIB
     Indication: Acute myeloid leukaemia
     Dates: start: 20240216, end: 20240216
  2. AYVAKIT [Suspect]
     Active Substance: AVAPRITINIB
     Dates: start: 20240217, end: 20240218
  3. POSACONAZOLE [Concomitant]
     Active Substance: POSACONAZOLE
     Indication: Prophylaxis
     Dates: start: 20250224, end: 20250224

REACTIONS (3)
  - Myelosuppression [Unknown]
  - Off label use [Unknown]
  - Off label use [Unknown]
